FAERS Safety Report 8828124 (Version 3)
Quarter: 2013Q1

REPORT INFORMATION
  Report Type: Spontaneous
  Country: JP (occurrence: JP)
  Receive Date: 20121008
  Receipt Date: 20130226
  Transmission Date: 20140127
  Serious: Yes (Hospitalization)
  Sender: FDA-Public Use
  Company Number: PHHY2012JP087350

PATIENT
  Age: 79 Year
  Sex: Female

DRUGS (2)
  1. TEGRETOL [Suspect]
     Dosage: UNK UKN, UNK
     Route: 048
     Dates: end: 20120921
  2. TEGRETOL [Suspect]
     Dosage: UNK (DOSE REDUCED)
     Route: 048
     Dates: start: 20120924

REACTIONS (2)
  - Altered state of consciousness [Recovered/Resolved]
  - Dizziness [Unknown]
